FAERS Safety Report 25534341 (Version 7)
Quarter: 2025Q3

REPORT INFORMATION
  Report Type: Spontaneous
  Country: JP (occurrence: JP)
  Receive Date: 20250709
  Receipt Date: 20250903
  Transmission Date: 20251021
  Serious: No
  Sender: PFIZER
  Company Number: JP-PFIZER INC-202500134909

PATIENT

DRUGS (4)
  1. ENBREL [Suspect]
     Active Substance: ETANERCEPT
  2. ENBREL [Suspect]
     Active Substance: ETANERCEPT
  3. ENBREL [Suspect]
     Active Substance: ETANERCEPT
  4. ENBREL [Suspect]
     Active Substance: ETANERCEPT

REACTIONS (3)
  - Device deployment issue [Unknown]
  - Device malfunction [Unknown]
  - Incorrect dose administered by device [Unknown]
